FAERS Safety Report 6314841-7 (Version None)
Quarter: 2009Q3

REPORT INFORMATION
  Report Type: 
  Country: None (occurrence: None)
  Receive Date: 20090819
  Receipt Date: 20090806
  Transmission Date: 20100115
  Serious: Yes (Hospitalization)
  Sender: FDA-Public Use
  Company Number: FR-PFIZER INC-2008039168

PATIENT
  Age: 0 Day

DRUGS (2)
  1. XANAX [Suspect]
     Route: 064
     Dates: end: 20080214
  2. DEROXAT [Suspect]
     Route: 064
     Dates: end: 20080214

REACTIONS (8)
  - ATRIAL SEPTAL DEFECT [None]
  - CYANOSIS [None]
  - DRUG EXPOSURE DURING PREGNANCY [None]
  - HYPERTONIA [None]
  - HYPOTONIA NEONATAL [None]
  - NYSTAGMUS [None]
  - POOR SUCKING REFLEX [None]
  - SKULL MALFORMATION [None]
